FAERS Safety Report 12056824 (Version 2)
Quarter: 2016Q1

REPORT INFORMATION
  Report Type: Spontaneous
  Country: FR (occurrence: FR)
  Receive Date: 20160209
  Receipt Date: 20160318
  Transmission Date: 20160526
  Serious: Yes (Hospitalization, Other)
  Sender: FDA-Public Use
  Company Number: FR-ASTRAZENECA-2016SE12531

PATIENT
  Age: 1036 Month
  Sex: Female

DRUGS (12)
  1. FLECTOR [Concomitant]
     Active Substance: DICLOFENAC EPOLAMINE
  2. COAPROVEL [Suspect]
     Active Substance: HYDROCHLOROTHIAZIDE\IRBESARTAN
     Indication: HYPERTENSION
     Dosage: 300 MG + 12.5 MG DAILY
     Route: 065
     Dates: end: 201601
  3. SEROPLEX [Suspect]
     Active Substance: ESCITALOPRAM OXALATE
     Indication: DEPRESSION
     Route: 048
     Dates: end: 20160110
  4. LEXOMIL [Suspect]
     Active Substance: BROMAZEPAM
     Dosage: (ROCHE) 1 TABLET PER DAY
     Route: 048
     Dates: start: 201512, end: 201601
  5. INEXIUM [Suspect]
     Active Substance: ESOMEPRAZOLE
     Route: 048
     Dates: end: 20160112
  6. TEMESTA [Suspect]
     Active Substance: LORAZEPAM
     Route: 048
     Dates: end: 20160112
  7. LEVOTHYROX [Concomitant]
     Active Substance: LEVOTHYROXINE
  8. DEDROGYL [Concomitant]
     Active Substance: CALCIFEDIOL
  9. MONOCRIXO [Suspect]
     Active Substance: TRAMADOL HYDROCHLORIDE
     Route: 048
     Dates: end: 20160110
  10. CALCIDOSE [Concomitant]
     Active Substance: CALCIUM CARBONATE
     Dosage: 500
  11. TROPHIGIL [Concomitant]
     Active Substance: ESTRIOL
  12. AVLOCARDYL [Concomitant]
     Active Substance: PROPRANOLOL HYDROCHLORIDE

REACTIONS (9)
  - Fall [Unknown]
  - Hyponatraemia [Recovered/Resolved]
  - Inappropriate antidiuretic hormone secretion [Unknown]
  - Depressed level of consciousness [Recovered/Resolved]
  - Hypertension [Unknown]
  - Productive cough [Unknown]
  - Faecal vomiting [Unknown]
  - Disorientation [Recovered/Resolved]
  - Bronchitis [Unknown]

NARRATIVE: CASE EVENT DATE: 201504
